FAERS Safety Report 24093516 (Version 3)
Quarter: 2024Q3

REPORT INFORMATION
  Report Type: Report from Study
  Country: CN (occurrence: CN)
  Receive Date: 20240715
  Receipt Date: 20240823
  Transmission Date: 20241017
  Serious: Yes (Hospitalization)
  Sender: G1 THERAPEUTICS
  Company Number: CN-SIMCERE ZAIMING PHARMACEUTICAL CO., LTD.-2024XSYY2896

PATIENT

DRUGS (13)
  1. TRILACICLIB [Suspect]
     Active Substance: TRILACICLIB
     Indication: Invasive breast carcinoma
     Dosage: 379.2 MG, QD
     Route: 042
     Dates: start: 20240521, end: 20240521
  2. TRILACICLIB [Suspect]
     Active Substance: TRILACICLIB
     Dosage: 384 MG, QD
     Route: 042
     Dates: start: 20240612, end: 20240612
  3. DOCETAXEL [Suspect]
     Active Substance: DOCETAXEL\DOCETAXEL ANHYDROUS
     Indication: Invasive breast carcinoma
     Dosage: 118 MG, QD
     Route: 042
     Dates: start: 20240521, end: 20240521
  4. DOCETAXEL [Suspect]
     Active Substance: DOCETAXEL\DOCETAXEL ANHYDROUS
     Dosage: 118 MG, QD
     Route: 042
     Dates: start: 20240612, end: 20240612
  5. CARBOPLATIN [Suspect]
     Active Substance: CARBOPLATIN
     Indication: Invasive breast carcinoma
     Dosage: 573 MG, QD
     Route: 042
     Dates: start: 20240521, end: 20240521
  6. PERTUZUMAB [Suspect]
     Active Substance: PERTUZUMAB
     Indication: Invasive breast carcinoma
     Dosage: 840 MG, QD
     Route: 042
     Dates: start: 20240521, end: 20240521
  7. PERTUZUMAB [Suspect]
     Active Substance: PERTUZUMAB
     Dosage: 420 MG, QD
     Route: 042
     Dates: start: 20240612, end: 20240612
  8. TRASTUZUMAB [Suspect]
     Active Substance: TRASTUZUMAB
     Indication: Invasive breast carcinoma
     Dosage: 448 G, QD
     Route: 042
     Dates: start: 20240521, end: 20240521
  9. TRASTUZUMAB [Suspect]
     Active Substance: TRASTUZUMAB
     Dosage: 345 G, QD
     Route: 042
     Dates: start: 20240612, end: 20240612
  10. MONTMORILLONITE [Concomitant]
     Active Substance: MONTMORILLONITE
     Indication: Diarrhoea
     Dosage: 3 G, TID
     Route: 048
     Dates: start: 20240615, end: 20240620
  11. LIVE COMBINED BIFIDOBACTERIUM, LACTOBACILLUS AND ENTEROCOCCUS [Concomitant]
     Indication: Diarrhoea
     Dosage: 0.21 G, BID
     Route: 048
     Dates: start: 20240620, end: 20240627
  12. RECOMBINANT HUMAN GRANULOCYTE COLONY STIMULATING FACTOR FOR INJECTION [Concomitant]
     Indication: White blood cell count decreased
     Dosage: 150 UG, QD
     Route: 065
     Dates: start: 20240620, end: 20240621
  13. RECOMBINANT HUMAN GRANULOCYTE COLONY STIMULATING FACTOR FOR INJECTION [Concomitant]
     Indication: Neutrophil count decreased

REACTIONS (1)
  - Hypokalaemia [Recovered/Resolved]

NARRATIVE: CASE EVENT DATE: 20240625
